FAERS Safety Report 5899459-2 (Version None)
Quarter: 2008Q3

REPORT INFORMATION
  Report Type: 
  Country: None (occurrence: None)
  Receive Date: 20080926
  Receipt Date: 20080515
  Transmission Date: 20090109
  Serious: Yes (Hospitalization)
  Sender: FDA-Public Use
  Company Number: DK-RANBAXY-2008RR-18161

PATIENT
  Sex: Female

DRUGS (2)
  1. SIMVASTATIN RANBAXY 40MG [Suspect]
  2. PREDNISOLON ^DAK^ [Suspect]

REACTIONS (2)
  - GASTRIC ULCER [None]
  - POLYMYOSITIS [None]
